FAERS Safety Report 10415838 (Version 1)
Quarter: 2014Q2

REPORT INFORMATION
  Report Type: Spontaneous
  Country: US (occurrence: None)
  Receive Date: 20140604
  Receipt Date: 20140604
  Transmission Date: 20141212
  Serious: No
  Sender: FDA-Public Use
  Company Number: 163-POMAL-14010767

PATIENT
  Age: 75 Year
  Sex: Female

DRUGS (10)
  1. POMALYST (POMALIDOMIDE) (4 MILLIGRAM, CAPSULES) [Suspect]
     Indication: PLASMA CELL MYELOMA
     Route: 048
     Dates: start: 20131003
  2. DEXAMETHASONE [Concomitant]
  3. EXEMASTANE [Concomitant]
  4. FENTANYL [Concomitant]
  5. OMEPRAZOLE [Concomitant]
  6. ACETAMINOPHEN (PARACETAMOL) [Concomitant]
  7. PERCOCET (OXYCOCET) [Concomitant]
  8. ACYCLOVIR (ACICLOVIR) [Concomitant]
  9. ZOFRAN (ONDANSETRON HYDROCHLORIDE) [Concomitant]
  10. SULFAMETHOXAZOLE-TRIMETHOPRIM (BACTRIM) [Concomitant]

REACTIONS (3)
  - Oedema peripheral [None]
  - Dizziness [None]
  - Skin discolouration [None]
